FAERS Safety Report 9460397 (Version 2)
Quarter: 2013Q4

REPORT INFORMATION
  Report Type: Spontaneous
  Country: US (occurrence: US)
  Receive Date: 20130815
  Receipt Date: 20131008
  Transmission Date: 20140711
  Serious: Yes (Death, Hospitalization, Other)
  Sender: FDA-Public Use
  Company Number: US-TEVA-425374USA

PATIENT
  Age: 32 Year
  Sex: Female
  Weight: 67.19 kg

DRUGS (15)
  1. ACTIQ [Suspect]
     Indication: PAIN
     Dosage: 1800 MICROGRAM DAILY;
     Route: 048
  2. ACTIQ [Suspect]
     Indication: ABDOMINAL PAIN
     Dosage: 600 MICROGRAM DAILY;
     Route: 048
  3. ACTIQ [Suspect]
     Indication: PAIN
  4. CINRYZE [Suspect]
     Indication: HEREDITARY ANGIOEDEMA
     Dosage: 500UNITS
     Route: 042
     Dates: start: 201303
  5. DILAUDID [Suspect]
     Indication: ABDOMINAL PAIN
     Dosage: 2 TO 4 MG (UNKNOWN 1 IN 2 HR)
     Route: 048
  6. DILAUDID [Suspect]
     Indication: HEREDITARY ANGIOEDEMA
     Route: 042
  7. BENADRYL [Suspect]
     Indication: ABDOMINAL PAIN
     Route: 048
  8. BENADRYL [Suspect]
     Indication: PROPHYLAXIS
  9. PHENERGAN [Suspect]
     Indication: PROPHYLAXIS
     Route: 048
  10. KLONOPIN [Concomitant]
     Indication: SLEEP DISORDER
     Route: 048
  11. SYNTHROID [Concomitant]
     Indication: HYPOTHYROIDISM
     Dosage: 50 MICROGRAM DAILY;
  12. FIRAZYR [Concomitant]
     Indication: HEREDITARY ANGIOEDEMA
     Route: 042
  13. AMBIEN [Concomitant]
     Indication: SLEEP DISORDER
  14. COLACE [Concomitant]
     Indication: CONSTIPATION
  15. BERINERT HS [Concomitant]
     Indication: HEREDITARY ANGIOEDEMA
     Dosage: 1500 UNIT
     Route: 042

REACTIONS (8)
  - Completed suicide [Fatal]
  - Overdose [Fatal]
  - Hereditary angioedema [Unknown]
  - Tooth abscess [Recovered/Resolved]
  - Off label use [Unknown]
  - Drug tolerance increased [Unknown]
  - Drug prescribing error [Unknown]
  - Drug ineffective [Unknown]
